FAERS Safety Report 23394492 (Version 2)
Quarter: 2024Q1

REPORT INFORMATION
  Report Type: Spontaneous
  Country: US (occurrence: US)
  Receive Date: 20240111
  Receipt Date: 20240113
  Transmission Date: 20240410
  Serious: Yes (Life-Threatening, Other)
  Sender: FDA-Public Use
  Company Number: US-ABBVIE-5582725

PATIENT
  Sex: Female

DRUGS (1)
  1. DEPAKOTE [Suspect]
     Active Substance: DIVALPROEX SODIUM
     Indication: Product used for unknown indication
     Dosage: FORM STRENGTH: 500 MILLIGRAMS
     Route: 048
     Dates: start: 2012, end: 2014

REACTIONS (8)
  - Suicidal ideation [Recovered/Resolved]
  - Weight increased [Recovered/Resolved]
  - Depression [Not Recovered/Not Resolved]
  - Lack of satiety [Recovered/Resolved]
  - Dizziness [Recovered/Resolved]
  - Irritability [Not Recovered/Not Resolved]
  - Frustration tolerance decreased [Not Recovered/Not Resolved]
  - Urinary tract infection [Recovered/Resolved]

NARRATIVE: CASE EVENT DATE: 20120101
